FAERS Safety Report 9149461 (Version 1)
Quarter: 2013Q1

REPORT INFORMATION
  Report Type: Spontaneous
  Country: US (occurrence: US)
  Receive Date: 20130308
  Receipt Date: 20130308
  Transmission Date: 20140127
  Serious: No
  Sender: FDA-Public Use
  Company Number: US-ENDO PHARMACEUTICALS INC.-OPCR20120353

PATIENT
  Age: 52 Year
  Sex: Female

DRUGS (2)
  1. OPANA ER 20MG [Suspect]
     Indication: PRODUCT USED FOR UNKNOWN INDICATION
     Route: 048
     Dates: start: 20120419, end: 20120419
  2. OPANA [Concomitant]

REACTIONS (3)
  - Throat irritation [Unknown]
  - Erythema [Unknown]
  - Pruritus generalised [Unknown]
